FAERS Safety Report 8073109-1 (Version None)
Quarter: 2012Q1

REPORT INFORMATION
  Report Type: 
  Country: None (occurrence: None)
  Receive Date: 20120126
  Receipt Date: 20120116
  Transmission Date: 20120608
  Serious: Yes (Hospitalization)
  Sender: FDA-Public Use
  Company Number: DK-NOVOPROD-338194

PATIENT
  Age: 69 Year
  Sex: Male
  Weight: 118.8 kg

DRUGS (4)
  1. LIRAGLUTIDE FLEXPEN [Suspect]
     Indication: OBESITY
     Dosage: 3.0 MG, QD
     Route: 058
     Dates: start: 20110902
  2. DICLON                             /00372302/ [Concomitant]
     Dosage: UNK, PRN
  3. CODEINE SUL TAB [Concomitant]
     Dosage: 1 G, PRN (MAX. X 4)
  4. PANTOPRAZOLE [Concomitant]
     Dosage: 40 MG, PRN (MAX. X 1

REACTIONS (3)
  - DIARRHOEA [None]
  - PYREXIA [None]
  - GASTROENTERITIS [None]
